FAERS Safety Report 4580761-1 (Version None)
Quarter: 2005Q1

REPORT INFORMATION
  Report Type: 
  Country: None (occurrence: None)
  Receive Date: 20050214
  Receipt Date: 20040528
  Transmission Date: 20050727
  Serious: No
  Sender: FDA-Public Use
  Company Number: US-GLAXOSMITHKLINE-A0512610A

PATIENT
  Age: 41 Year
  Sex: Male

DRUGS (8)
  1. LAMICTAL [Suspect]
     Indication: ILL-DEFINED DISORDER
     Dosage: 50MG AS REQUIRED
     Route: 048
     Dates: start: 20040428, end: 20040528
  2. PROVIGIL [Concomitant]
  3. STRATTERA [Concomitant]
  4. LEXAPRO [Concomitant]
  5. ZOCOR [Concomitant]
  6. FOLIC ACID [Concomitant]
  7. B12 [Concomitant]
  8. MULTI-VITAMIN [Concomitant]

REACTIONS (1)
  - RASH [None]
